FAERS Safety Report 4374971-6 (Version None)
Quarter: 2004Q2

REPORT INFORMATION
  Report Type: 
  Country: None (occurrence: None)
  Receive Date: 20040604
  Receipt Date: 20040521
  Transmission Date: 20050107
  Serious: No
  Sender: FDA-Public Use
  Company Number: 2004GB01271

PATIENT
  Age: 56 Year
  Sex: Female

DRUGS (4)
  1. LOSEC [Suspect]
     Dosage: 20 MG DAILY PO
     Route: 048
     Dates: start: 19840101
  2. THYROXINE ^APS^ [Concomitant]
  3. ATORVASTATIN CALCIUM [Concomitant]
  4. HRT [Concomitant]

REACTIONS (1)
  - LEUKOPENIA [None]
